FAERS Safety Report 4977724-0 (Version None)
Quarter: 2006Q2

REPORT INFORMATION
  Report Type: 
  Country: None (occurrence: None)
  Receive Date: 20060414
  Receipt Date: 20060410
  Transmission Date: 20061013
  Serious: Yes (Other)
  Sender: FDA-Public Use
  Company Number: THQ2005A00760

PATIENT
  Age: 33 Year

DRUGS (1)
  1. LANSOPRAZOLE [Suspect]
     Indication: ENDOSCOPY
     Dosage: (30 MG) PER ORAL
     Route: 048
     Dates: start: 20050802, end: 20050802

REACTIONS (5)
  - ABDOMINAL PAIN [None]
  - CHEST PAIN [None]
  - EYE PAIN [None]
  - HYPERHIDROSIS [None]
  - VISION BLURRED [None]
